FAERS Safety Report 25493100 (Version 1)
Quarter: 2025Q2

REPORT INFORMATION
  Report Type: Spontaneous
  Country: US (occurrence: US)
  Receive Date: 20250630
  Receipt Date: 20250630
  Transmission Date: 20250716
  Serious: No
  Sender: MYLAN
  Company Number: US-MYLANLABS-2025M1052603

PATIENT
  Age: 60 Year
  Sex: Female
  Weight: 65.77 kg

DRUGS (4)
  1. RYZUMVI [Suspect]
     Active Substance: PHENTOLAMINE MESYLATE
     Indication: Mydriasis
  2. RYZUMVI [Suspect]
     Active Substance: PHENTOLAMINE MESYLATE
     Route: 065
  3. RYZUMVI [Suspect]
     Active Substance: PHENTOLAMINE MESYLATE
     Route: 065
  4. RYZUMVI [Suspect]
     Active Substance: PHENTOLAMINE MESYLATE

REACTIONS (3)
  - Photophobia [Recovered/Resolved]
  - Instillation site erythema [Recovered/Resolved]
  - Instillation site pain [Recovered/Resolved]

NARRATIVE: CASE EVENT DATE: 20250610
